FAERS Safety Report 12201949 (Version 1)
Quarter: 2016Q1

REPORT INFORMATION
  Report Type: Spontaneous
  Country: US (occurrence: US)
  Receive Date: 20160322
  Receipt Date: 20160322
  Transmission Date: 20160526
  Serious: Yes (Other)
  Sender: FDA-Public Use
  Company Number: US-MDT-ADR-2016-00543

PATIENT
  Age: 54 Year
  Sex: Female

DRUGS (3)
  1. BACLOFEN, UNKNOWN [Suspect]
     Active Substance: BACLOFEN
     Dosage: 63.44 MCG/DAY
  2. CLONIDINE. [Suspect]
     Active Substance: CLONIDINE
     Dosage: 63.44 MCG/DAY
  3. DILAUDID [Suspect]
     Active Substance: HYDROMORPHONE HYDROCHLORIDE
     Dosage: 6.3 MG/DAY

REACTIONS (2)
  - Pain [Not Recovered/Not Resolved]
  - Systemic lupus erythematosus [Not Recovered/Not Resolved]
